FAERS Safety Report 14207791 (Version 2)
Quarter: 2018Q1

REPORT INFORMATION
  Report Type: Spontaneous
  Country: US (occurrence: US)
  Receive Date: 20171121
  Receipt Date: 20180208
  Transmission Date: 20180508
  Serious: No
  Sender: FDA-Public Use
  Company Number: US-JNJFOC-20171011144

PATIENT
  Age: 80 Year
  Sex: Female
  Weight: 60 kg

DRUGS (18)
  1. MAGNESIUM [Concomitant]
     Active Substance: MAGNESIUM
  2. IMBRUVICA [Suspect]
     Active Substance: IBRUTINIB
     Indication: LYMPHOMA
     Route: 048
     Dates: start: 201708
  3. ELIQUIS [Concomitant]
     Active Substance: APIXABAN
  4. METFORMIN [Concomitant]
     Active Substance: METFORMIN HYDROCHLORIDE
     Indication: DIABETES MELLITUS
  5. ZINC OXIDE. [Concomitant]
     Active Substance: ZINC OXIDE
  6. MULTIVITAMINS [Concomitant]
     Active Substance: VITAMINS
  7. PRILOSEC [Concomitant]
     Active Substance: OMEPRAZOLE MAGNESIUM
  8. LISINOPRIL. [Concomitant]
     Active Substance: LISINOPRIL
  9. NORCO [Concomitant]
     Active Substance: ACETAMINOPHEN\HYDROCODONE BITARTRATE
  10. IMBRUVICA [Suspect]
     Active Substance: IBRUTINIB
     Indication: LYMPHOMA
     Route: 048
     Dates: start: 20170823
  11. DIGOXIN. [Concomitant]
     Active Substance: DIGOXIN
  12. IMBRUVICA [Suspect]
     Active Substance: IBRUTINIB
     Indication: B-CELL SMALL LYMPHOCYTIC LYMPHOMA
     Route: 048
     Dates: start: 20170823
  13. IMBRUVICA [Suspect]
     Active Substance: IBRUTINIB
     Indication: B-CELL SMALL LYMPHOCYTIC LYMPHOMA
     Route: 048
     Dates: start: 201708
  14. ZANTAC [Concomitant]
     Active Substance: RANITIDINE HYDROCHLORIDE
  15. GLIPIZIDE. [Concomitant]
     Active Substance: GLIPIZIDE
     Indication: DIABETES MELLITUS
  16. CARDIZEM CD [Concomitant]
     Active Substance: DILTIAZEM HYDROCHLORIDE
  17. SENOKOT [Concomitant]
     Active Substance: SENNOSIDES
  18. LASIX [Concomitant]
     Active Substance: FUROSEMIDE

REACTIONS (3)
  - Drug dose omission [Unknown]
  - Off label use [Unknown]
  - Product use issue [Unknown]

NARRATIVE: CASE EVENT DATE: 20170823
